FAERS Safety Report 5198394-5 (Version None)
Quarter: 2007Q1

REPORT INFORMATION
  Report Type: 
  Country: None (occurrence: None)
  Receive Date: 20070104
  Receipt Date: 20061226
  Transmission Date: 20070707
  Serious: Yes (Hospitalization)
  Sender: FDA-Public Use
  Company Number: JP-BRISTOL-MYERS SQUIBB COMPANY-13626411

PATIENT
  Age: 1 Year
  Sex: Male

DRUGS (9)
  1. VEPESID [Suspect]
     Indication: NEUROBLASTOMA
     Route: 041
  2. PARAPLATIN [Suspect]
     Indication: NEUROBLASTOMA
     Route: 041
  3. RANDA [Concomitant]
     Route: 041
  4. RANDA [Concomitant]
     Route: 041
  5. ENDOXAN [Concomitant]
  6. ADRIAMYCIN PFS [Concomitant]
  7. ONCOVIN [Concomitant]
  8. PIRARUBICIN [Concomitant]
  9. ALKERAN [Concomitant]

REACTIONS (1)
  - VENOOCCLUSIVE LIVER DISEASE [None]
